FAERS Safety Report 20738996 (Version 1)
Quarter: 2022Q2

REPORT INFORMATION
  Report Type: Spontaneous
  Country: US (occurrence: US)
  Receive Date: 20220422
  Receipt Date: 20220422
  Transmission Date: 20220720
  Serious: No
  Sender: FDA-Public Use
  Company Number: US-Kiniksa Pharmaceuticals Ltd.-2022KPU000049

PATIENT
  Age: 35 Year
  Sex: Female

DRUGS (1)
  1. ARCALYST [Suspect]
     Active Substance: RILONACEPT
     Indication: Product used for unknown indication
     Route: 058
     Dates: start: 202111

REACTIONS (3)
  - Myalgia [Unknown]
  - Injection site swelling [Unknown]
  - Injection site erythema [Unknown]

NARRATIVE: CASE EVENT DATE: 20211130
